FAERS Safety Report 4689090-9 (Version None)
Quarter: 2005Q2

REPORT INFORMATION
  Report Type: 
  Country: None (occurrence: None)
  Receive Date: 20050613
  Receipt Date: 20040422
  Transmission Date: 20051028
  Serious: Yes (Other)
  Sender: FDA-Public Use
  Company Number: PHBS2004BE05796

PATIENT
  Age: 65 Year
  Sex: Female

DRUGS (16)
  1. AREDIA [Suspect]
     Indication: MULTIPLE MYELOMA
     Dosage: UNK, UNK
     Dates: start: 20011101, end: 20031101
  2. VINCRISTINE [Concomitant]
     Route: 065
     Dates: start: 19960601
  3. VINCRISTINE [Concomitant]
     Route: 065
     Dates: start: 20010101
  4. VINCRISTINE [Concomitant]
     Route: 065
  5. MELPHALAN [Concomitant]
     Dates: start: 19960601
  6. MELPHALAN [Concomitant]
     Dates: start: 20010101
  7. CYCLOPHOSPHAMIDE [Concomitant]
     Dates: start: 19960601
  8. CYCLOPHOSPHAMIDE [Concomitant]
     Dates: start: 20010101
  9. PREDNISONE TAB [Concomitant]
     Dates: start: 19960601
  10. PREDNISONE TAB [Concomitant]
     Dates: start: 20010101
  11. VINCRISTINE + ADRIAMYCIN + DEXAMETHASONE [Concomitant]
     Dates: start: 19960601
  12. VINCRISTINE + ADRIAMYCIN + DEXAMETHASONE [Concomitant]
     Dosage: UNK, UNK
     Dates: start: 20011101
  13. ZOMETA [Suspect]
     Indication: MULTIPLE MYELOMA
     Route: 065
     Dates: start: 20030701, end: 20031101
  14. BONE MARROW TRANSPLANT [Concomitant]
     Dosage: STEM CELL COLLECTION
     Route: 065
     Dates: start: 20010101
  15. DACTINOMYCIN [Concomitant]
     Route: 065
  16. VELCADE [Concomitant]
     Route: 065
     Dates: start: 20041101

REACTIONS (13)
  - ASEPTIC NECROSIS BONE [None]
  - BONE INFECTION [None]
  - FISTULA [None]
  - MALIGNANT NEOPLASM PROGRESSION [None]
  - ORAL SOFT TISSUE DISORDER [None]
  - OSTEOMYELITIS [None]
  - OSTEONECROSIS [None]
  - OSTEOSYNTHESIS [None]
  - PRIMARY SEQUESTRUM [None]
  - PURULENT DISCHARGE [None]
  - SECRETION DISCHARGE [None]
  - ULCER [None]
  - WOUND DEBRIDEMENT [None]
